FAERS Safety Report 18983882 (Version 2)
Quarter: 2021Q1

REPORT INFORMATION
  Report Type: Spontaneous
  Country: US (occurrence: US)
  Receive Date: 20210308
  Receipt Date: 20210329
  Transmission Date: 20210420
  Serious: Yes (Hospitalization, Other)
  Sender: FDA-Public Use
  Company Number: US-BAUSCH-BL-2021-007700

PATIENT
  Age: 71 Year
  Sex: Male
  Weight: 95.34 kg

DRUGS (3)
  1. XIFAXAN [Suspect]
     Active Substance: RIFAXIMIN
     Dosage: RECEIVED SAMPLES FOR 3 MONTHS
     Route: 065
     Dates: start: 202010, end: 2021
  2. XIFAXAN [Suspect]
     Active Substance: RIFAXIMIN
     Indication: IRRITABLE BOWEL SYNDROME
     Dosage: 8 MONTHS PRIOR TO DATE OF HOSPITALIZATION DATE
     Route: 065
     Dates: start: 202002, end: 2020
  3. CIPRO [Suspect]
     Active Substance: CIPROFLOXACIN HYDROCHLORIDE
     Indication: IRRITABLE BOWEL SYNDROME
     Route: 065
     Dates: start: 2020

REACTIONS (7)
  - Irritable bowel syndrome [Not Recovered/Not Resolved]
  - Condition aggravated [Not Recovered/Not Resolved]
  - Arrhythmia [Recovered/Resolved]
  - Therapy interrupted [Unknown]
  - Inappropriate schedule of product administration [Unknown]
  - Inability to afford medication [Unknown]
  - Insurance issue [Unknown]

NARRATIVE: CASE EVENT DATE: 2020
